FAERS Safety Report 7474877-X (Version None)
Quarter: 2011Q2

REPORT INFORMATION
  Report Type: 
  Country: None (occurrence: None)
  Receive Date: 20110512
  Receipt Date: 20110505
  Transmission Date: 20111010
  Serious: Yes (Death, Hospitalization)
  Sender: FDA-Public Use
  Company Number: TW-CELGENEUS-153-C5013-11033377

PATIENT
  Sex: Female
  Weight: 42.5 kg

DRUGS (39)
  1. FILGRASTIM [Concomitant]
     Dosage: 300 MICROGRAM
     Route: 058
     Dates: start: 20110416, end: 20110417
  2. INDERAL [Concomitant]
     Indication: VARICES OESOPHAGEAL
     Dosage: 20 MILLIGRAM
     Route: 048
  3. LACTULOSE [Concomitant]
     Dosage: 20 MILLILITER
     Route: 048
     Dates: start: 20110407
  4. GASCON [Concomitant]
     Route: 048
  5. CEFAZOLIN SODIUM [Concomitant]
     Route: 051
     Dates: start: 20110407, end: 20110408
  6. TRAMADOL HYDROCHLORIDE [Concomitant]
     Route: 048
     Dates: start: 20110407, end: 20110408
  7. MORPHINE [Concomitant]
     Dosage: 30 MILLILITER
     Route: 048
  8. MOPRIDE [Concomitant]
     Dosage: 15 MILLIGRAM
     Route: 048
  9. NEXIUM [Concomitant]
     Route: 048
  10. DIPHENHYDRAMINE [Concomitant]
     Route: 051
     Dates: start: 20110425, end: 20110426
  11. TRAMADOL HYDROCHLORIDE [Concomitant]
     Dosage: 35.5/ 325 MG
     Route: 048
     Dates: start: 20110411, end: 20110413
  12. TRAMADOL HYDROCHLORIDE [Concomitant]
     Dosage: 35.5/ 325 MG
     Route: 048
     Dates: start: 20110415, end: 20110416
  13. FUROSEMIDE [Concomitant]
     Dosage: 60 MILLIGRAM
     Route: 051
     Dates: start: 20110413
  14. MORPHINE [Concomitant]
     Indication: ABDOMINAL PAIN
     Dosage: 12 MILLIGRAM
     Route: 048
     Dates: start: 20110416
  15. VENAN [Concomitant]
     Route: 065
  16. LENALIDOMIDE [Suspect]
     Indication: MULTIPLE MYELOMA
     Dosage: 10 MILLIGRAM
     Route: 048
     Dates: start: 20110308, end: 20110428
  17. NEUPOGEN [Concomitant]
     Route: 065
     Dates: start: 20110301, end: 20110315
  18. WHOLE BLOOD [Concomitant]
     Route: 051
  19. TOPAAL [Concomitant]
     Dosage: 400 MILLIGRAM
     Route: 048
  20. LACTULOSE [Concomitant]
     Dosage: 40 MILLILITER
     Route: 048
     Dates: start: 20110425, end: 20110427
  21. TRAMADOL HYDROCHLORIDE [Concomitant]
     Dosage: 35.5/ 325 MG
     Route: 048
     Dates: start: 20110415
  22. FUROSEMIDE [Concomitant]
     Route: 051
     Dates: start: 20110413, end: 20110414
  23. VELCADE [Concomitant]
     Indication: MULTIPLE MYELOMA
     Route: 065
  24. DIPHENHYDRAMINE [Concomitant]
     Route: 051
     Dates: start: 20110416, end: 20110417
  25. DIPHENHYDRAMINE [Concomitant]
     Route: 051
     Dates: start: 20110426, end: 20110428
  26. POTASSIUM CHLORIDE [Concomitant]
     Route: 048
     Dates: start: 20110407, end: 20110409
  27. TRANEXAMIC ACID [Concomitant]
     Route: 051
     Dates: start: 20110408, end: 20110409
  28. MORPHINE [Concomitant]
     Indication: BREAKTHROUGH PAIN
     Dosage: 24 MILLIGRAM
     Route: 058
     Dates: start: 20110425, end: 20110428
  29. CEFAZOLIN SODIUM [Concomitant]
     Dosage: 3000 MILLIGRAM
     Route: 051
     Dates: start: 20110407, end: 20110407
  30. CEFAZOLIN SODIUM [Concomitant]
     Dosage: 2000 MILLIGRAM
     Route: 051
     Dates: start: 20110407
  31. TEICOPLANIN [Concomitant]
     Dosage: 800 MILLIGRAM
     Route: 065
     Dates: start: 20110413, end: 20110414
  32. FUROSEMIDE [Concomitant]
     Dosage: 40 MILLIGRAM
     Route: 048
     Dates: start: 20110425, end: 20110426
  33. LEVOCETIRIZINE DIHYDROCHLORIDE [Concomitant]
     Dosage: 5 MILLIGRAM
     Route: 048
     Dates: start: 20110425, end: 20110426
  34. MAXIPIME [Concomitant]
     Route: 065
  35. DIPHENHYDRAMINE [Concomitant]
     Route: 051
     Dates: start: 20110407, end: 20110408
  36. CEFTAZIDIME PENTAHYDRATE [Concomitant]
     Dosage: 2000 MILLIGRAM
     Route: 051
     Dates: start: 20110409, end: 20110413
  37. OXETHAZAINE [Concomitant]
     Route: 048
     Dates: start: 20110425, end: 20110426
  38. TEICOPLANIN [Concomitant]
     Route: 065
     Dates: start: 20110415, end: 20110416
  39. TEICOPLANIN [Concomitant]
     Dosage: 400 MILLIGRAM
     Route: 065
     Dates: start: 20110416

REACTIONS (4)
  - HEPATIC NEOPLASM MALIGNANT [None]
  - JAUNDICE [None]
  - HEPATIC CIRRHOSIS [None]
  - JAUNDICE CHOLESTATIC [None]
